FAERS Safety Report 8055289-7 (Version None)
Quarter: 2012Q1

REPORT INFORMATION
  Report Type: 
  Country: None (occurrence: None)
  Receive Date: 20120119
  Receipt Date: 20120109
  Transmission Date: 20120608
  Serious: Yes (Hospitalization, Other)
  Sender: FDA-Public Use
  Company Number: US-BAYER-2011-026889

PATIENT
  Age: 34 Year
  Sex: Female
  Weight: 82 kg

DRUGS (9)
  1. EFFEXOR [Concomitant]
     Indication: DEPRESSION
     Dosage: 150 MG, UNK
     Dates: start: 20050101
  2. YASMIN [Suspect]
     Indication: CONTRACEPTION
     Dosage: UNK
     Route: 048
     Dates: start: 20041201, end: 20090601
  3. IMURAN [Concomitant]
     Dosage: 150 MG, QD
     Route: 048
  4. FOLIC ACID [Concomitant]
     Indication: AUTOIMMUNE DISORDER
     Dosage: 1 MG, QD
     Route: 048
     Dates: start: 20050101
  5. PREDNISONE [Concomitant]
     Indication: AUTOIMMUNE DISORDER
     Dosage: 3 MG, QD
     Route: 048
     Dates: start: 20050101, end: 20100101
  6. AZATHIOPRINE [Concomitant]
     Indication: AUTOIMMUNE DISORDER
     Dosage: UNK
     Route: 048
     Dates: start: 20050101
  7. METHOTREXATE [Concomitant]
     Indication: AUTOIMMUNE DISORDER
     Dosage: UNK
     Route: 048
     Dates: start: 20050101
  8. METHOTREXATE [Concomitant]
     Dosage: 1 ML, OW
     Route: 058
  9. DROSPIRENONE AND ETHINYL ESTRADIOL [Suspect]
     Indication: CONTRACEPTION
     Dosage: UNK
     Route: 048
     Dates: start: 20041201, end: 20090601

REACTIONS (8)
  - EMOTIONAL DISTRESS [None]
  - PAIN [None]
  - PULMONARY FIBROSIS [None]
  - DEEP VEIN THROMBOSIS [None]
  - INJURY [None]
  - GENERAL PHYSICAL HEALTH DETERIORATION [None]
  - ANXIETY [None]
  - PULMONARY EMBOLISM [None]
